FAERS Safety Report 7814763-6 (Version None)
Quarter: 2011Q4

REPORT INFORMATION
  Report Type: 
  Country: None (occurrence: None)
  Receive Date: 20111014
  Receipt Date: 20111006
  Transmission Date: 20120403
  Serious: Yes (Other)
  Sender: FDA-Public Use
  Company Number: CA-JNJFOC-20111001890

PATIENT
  Sex: Female
  Weight: 53.52 kg

DRUGS (1)
  1. STELARA [Suspect]
     Indication: PSORIASIS
     Route: 058
     Dates: start: 20100928

REACTIONS (2)
  - HEADACHE [None]
  - VISUAL ACUITY REDUCED [None]
